FAERS Safety Report 4578764-6 (Version None)
Quarter: 2005Q1

REPORT INFORMATION
  Report Type: 
  Country: None (occurrence: None)
  Receive Date: 20050207
  Receipt Date: 20050207
  Transmission Date: 20050727
  Serious: Yes (Other)
  Sender: FDA-Public Use
  Company Number: None

PATIENT
  Age: 71 Year
  Sex: Female
  Weight: 54.8852 kg

DRUGS (5)
  1. CARBOPLATIN [Suspect]
     Indication: OVARIAN CANCER
     Dosage: 505 MG. IV
     Route: 042
     Dates: start: 20050104
  2. CARBOPLATIN [Suspect]
     Indication: OVARIAN CANCER
     Dosage: 505 MG. IV
     Route: 042
     Dates: start: 20050125
  3. PEPCID [Concomitant]
  4. BENADRYL [Concomitant]
  5. DECADRON [Concomitant]

REACTIONS (4)
  - CYANOSIS [None]
  - DYSPNOEA [None]
  - FEELING ABNORMAL [None]
  - FLUSHING [None]
